FAERS Safety Report 9553837 (Version 1)
Quarter: 2013Q3

REPORT INFORMATION
  Report Type: Spontaneous
  Country: US (occurrence: None)
  Receive Date: 20130924
  Receipt Date: 20130924
  Transmission Date: 20140515
  Serious: No
  Sender: FDA-Public Use
  Company Number: None

PATIENT
  Age: 73 Year
  Sex: 0
  Weight: 79.38 kg

DRUGS (11)
  1. CLARITIN-D [Suspect]
     Indication: NASAL CONGESTION
     Dosage: 1 PILL, USU 1/DAY (SOMETIMES 2), BY MOUTH
  2. PROTONIX [Concomitant]
  3. CELEBREX [Concomitant]
  4. LOMOTIL [Concomitant]
  5. LISINOPRIL [Concomitant]
  6. CHLORTHALIDONE [Concomitant]
  7. XYZAL [Concomitant]
  8. NITROGLYCERIN [Concomitant]
  9. ASPIRIN [Concomitant]
  10. TUMS [Concomitant]
  11. ALEVE [Concomitant]

REACTIONS (3)
  - Stomatitis [None]
  - Skin ulcer [None]
  - Adverse drug reaction [None]
